FAERS Safety Report 16025954 (Version 1)
Quarter: 2019Q1

REPORT INFORMATION
  Report Type: Spontaneous
  Country: TR (occurrence: TR)
  Receive Date: 20190302
  Receipt Date: 20190302
  Transmission Date: 20190418
  Serious: Yes (Other)
  Sender: FDA-Public Use
  Company Number: TR-009507513-1902TUR009537

PATIENT
  Age: 88 Year
  Sex: Male

DRUGS (7)
  1. ENOX (RAMIPRIL) [Concomitant]
     Route: 058
  2. DIKLORON (DICLOFENAC DIETHYLAMINE) [Concomitant]
     Route: 048
  3. INVANZ [Suspect]
     Active Substance: ERTAPENEM SODIUM
     Indication: URINARY TRACT INFECTION
     Dosage: 1X1
     Route: 042
     Dates: start: 20180115, end: 20180119
  4. BELOC-ZOK [Concomitant]
     Active Substance: METOPROLOL SUCCINATE
     Dosage: 1X1
     Route: 048
  5. MUCINAC [Concomitant]
     Dosage: 3X1
     Route: 042
  6. TARDEN (ATORVASTATIN CALCIUM) [Concomitant]
     Route: 048
  7. PROGAS [Concomitant]
     Dosage: 1X1
     Route: 042

REACTIONS (2)
  - Loss of consciousness [Recovered/Resolved]
  - Syncope [Recovered/Resolved]

NARRATIVE: CASE EVENT DATE: 20180118
